FAERS Safety Report 7561592-7 (Version None)
Quarter: 2011Q2

REPORT INFORMATION
  Report Type: 
  Country: None (occurrence: None)
  Receive Date: 20110621
  Receipt Date: 20100628
  Transmission Date: 20111010
  Serious: No
  Sender: FDA-Public Use
  Company Number: US-ASTRAZENECA-2010SE00990

PATIENT
  Age: 924 Month
  Sex: Female
  Weight: 44.9 kg

DRUGS (9)
  1. PULMICORT FLEXHALER [Suspect]
     Indication: CHRONIC OBSTRUCTIVE PULMONARY DISEASE
     Dosage: 2 PUFFS
     Route: 055
     Dates: start: 20091201
  2. PULMICORT FLEXHALER [Suspect]
     Indication: ASTHMA
     Dosage: 2 PUFFS
     Route: 055
     Dates: start: 20091201
  3. PULMICORT FLEXHALER [Suspect]
     Indication: BRONCHIECTASIS
     Dosage: 2 PUFFS
     Route: 055
     Dates: start: 20091201
  4. ADVAIR DISKUS 100/50 [Concomitant]
  5. PULMICORT FLEXHALER [Suspect]
     Dosage: 180MCG 1 PUFF
     Route: 055
     Dates: start: 20100601
  6. PULMICORT FLEXHALER [Suspect]
     Dosage: 180MCG 1 PUFF
     Route: 055
     Dates: start: 20100601
  7. PULMICORT FLEXHALER [Suspect]
     Dosage: 180MCG 1 PUFF
     Route: 055
     Dates: start: 20100601
  8. NYSTATIN [Concomitant]
     Indication: ORAL CANDIDIASIS
  9. FORADIL [Concomitant]

REACTIONS (3)
  - COUGH [None]
  - TRANSIENT ISCHAEMIC ATTACK [None]
  - ORAL CANDIDIASIS [None]
